FAERS Safety Report 7770494-2 (Version None)
Quarter: 2011Q3

REPORT INFORMATION
  Report Type: 
  Country: None (occurrence: None)
  Receive Date: 20110922
  Receipt Date: 20110223
  Transmission Date: 20111222
  Serious: No
  Sender: FDA-Public Use
  Company Number: US-ASTRAZENECA-2011SE10223

PATIENT
  Age: 470 Month
  Sex: Female
  Weight: 90.7 kg

DRUGS (2)
  1. SYNTHROID [Concomitant]
     Indication: HYPOTHYROIDISM
  2. SEROQUEL XR [Suspect]
     Indication: BIPOLAR DISORDER
     Route: 048
     Dates: start: 20090801, end: 20110101

REACTIONS (5)
  - BIPOLAR DISORDER [None]
  - FEELING ABNORMAL [None]
  - DRUG DOSE OMISSION [None]
  - FATIGUE [None]
  - INSOMNIA [None]
